FAERS Safety Report 7234025-8 (Version None)
Quarter: 2011Q1

REPORT INFORMATION
  Report Type: 
  Country: None (occurrence: None)
  Receive Date: 20110119
  Receipt Date: 20100602
  Transmission Date: 20110831
  Serious: No
  Sender: FDA-Public Use
  Company Number: US-PFIZER INC-2010069884

PATIENT
  Sex: Female

DRUGS (4)
  1. HEMABATE [Suspect]
     Indication: POSTPARTUM HAEMORRHAGE
     Dosage: 250 UG, 1X/DAY
     Dates: start: 20100602
  2. PRENATAL VITAMINS [Concomitant]
     Dosage: UNK
  3. CHLORPHENIRAMINE [Concomitant]
     Indication: COUGH
     Dosage: UNK
  4. HYDROCODONE [Concomitant]
     Indication: COUGH
     Dosage: UNK

REACTIONS (4)
  - FEELING COLD [None]
  - OEDEMA PERIPHERAL [None]
  - ERYTHEMA [None]
  - INCORRECT ROUTE OF DRUG ADMINISTRATION [None]
